FAERS Safety Report 24771740 (Version 1)
Quarter: 2024Q4

REPORT INFORMATION
  Report Type: Spontaneous
  Country: CA (occurrence: CA)
  Receive Date: 20241224
  Receipt Date: 20241224
  Transmission Date: 20250115
  Serious: Yes (Death, Life-Threatening, Hospitalization, Disabling, Congenital Anomaly, Other)
  Sender: CHATTEM
  Company Number: CA-SAKK-2024SA120566AA

PATIENT
  Age: 40 Year
  Sex: Female

DRUGS (25)
  1. TRIAMCINOLONE ACETONIDE [Suspect]
     Active Substance: TRIAMCINOLONE ACETONIDE
     Indication: Rheumatoid arthritis
     Dosage: UNK
     Route: 065
  2. ACETAMINOPHEN [Suspect]
     Active Substance: ACETAMINOPHEN
     Indication: Rheumatoid arthritis
     Dosage: UNK
  3. ACETAMINOPHEN [Suspect]
     Active Substance: ACETAMINOPHEN
     Dosage: UNK
  4. ACETAMINOPHEN [Suspect]
     Active Substance: ACETAMINOPHEN
     Dosage: UNK
  5. ACETAMINOPHEN [Suspect]
     Active Substance: ACETAMINOPHEN
     Dosage: 20 MG
  6. DESOXIMETASONE [Suspect]
     Active Substance: DESOXIMETASONE
     Indication: Rheumatoid arthritis
     Dosage: UNK
     Route: 048
  7. DESOXIMETASONE [Suspect]
     Active Substance: DESOXIMETASONE
     Dosage: 25 MG
     Route: 065
  8. DESOXIMETASONE [Suspect]
     Active Substance: DESOXIMETASONE
     Dosage: UNK
     Route: 058
  9. DESOXIMETASONE [Suspect]
     Active Substance: DESOXIMETASONE
     Dosage: UNK
     Route: 048
  10. DESOXIMETASONE [Suspect]
     Active Substance: DESOXIMETASONE
     Dosage: 25 MG
     Route: 048
  11. DESOXIMETASONE [Suspect]
     Active Substance: DESOXIMETASONE
     Dosage: 25 MG
     Route: 048
  12. DESOXIMETASONE [Suspect]
     Active Substance: DESOXIMETASONE
     Dosage: UNK
     Route: 003
  13. FOLIC ACID [Suspect]
     Active Substance: FOLIC ACID
     Indication: Rheumatoid arthritis
     Dosage: 0.5 MG
     Route: 048
  14. FOLIC ACID [Suspect]
     Active Substance: FOLIC ACID
     Dosage: 15 MG
     Route: 048
  15. FOLIC ACID [Suspect]
     Active Substance: FOLIC ACID
     Dosage: UNK
  16. FOLIC ACID [Suspect]
     Active Substance: FOLIC ACID
     Dosage: 5 MG
  17. FOLIC ACID [Suspect]
     Active Substance: FOLIC ACID
     Dosage: 25 MG
     Route: 048
  18. FOLIC ACID [Suspect]
     Active Substance: FOLIC ACID
     Dosage: 1.0 MG
     Route: 058
  19. FOLIC ACID [Suspect]
     Active Substance: FOLIC ACID
     Dosage: 500 MG
     Route: 048
  20. HYDROCORTISONE [Suspect]
     Active Substance: HYDROCORTISONE
     Indication: Product used for unknown indication
     Dosage: UNK
     Route: 065
  21. CHOLECALCIFEROL [Suspect]
     Active Substance: CHOLECALCIFEROL
     Indication: Product used for unknown indication
     Dosage: UNK
  22. ACETAMINOPHEN\CODEINE PHOSPHATE [Suspect]
     Active Substance: ACETAMINOPHEN\CODEINE PHOSPHATE
     Indication: Product used for unknown indication
     Dosage: UNK
  23. DICLOFENAC [Suspect]
     Active Substance: DICLOFENAC
     Indication: Product used for unknown indication
     Dosage: UNK
  24. DICLOFENAC [Suspect]
     Active Substance: DICLOFENAC
     Dosage: UNK
  25. DICLOFENAC [Suspect]
     Active Substance: DICLOFENAC
     Dosage: UNK;VOLTAREN

REACTIONS (1)
  - Blepharospasm [Fatal]
